FAERS Safety Report 6088025-4 (Version None)
Quarter: 2009Q1

REPORT INFORMATION
  Report Type: 
  Country: None (occurrence: None)
  Receive Date: 20090217
  Receipt Date: 20090202
  Transmission Date: 20090719
  Serious: Yes (Death, Other)
  Sender: FDA-Public Use
  Company Number: CHPA2009US01831

PATIENT
  Age: 40 Year
  Sex: Male

DRUGS (11)
  1. DIPHENHYDRAMINE HCL [Suspect]
     Dosage: ORAL
     Route: 048
  2. DEXTROMETHORPHAN HYDROBROMIDE [Suspect]
     Dosage: ORAL
     Route: 048
  3. ^DRAIN OPENER (SODIUM HYDROXIDE)^ () [Suspect]
     Dosage: ORAL
     Route: 048
  4. METHANOL (METHANOL) [Suspect]
     Dosage: ORAL
     Route: 048
  5. IBUPROFEN [Suspect]
     Dosage: ORAL
     Route: 048
  6. DOXYLAMINE SUCCINATE [Suspect]
     Dosage: ORAL
     Route: 048
  7. ACETAMINOPHEN [Concomitant]
  8. SALICYLATES (SALICYLATES) [Concomitant]
  9. ETHANOL (ETHANOL) [Concomitant]
  10. ISOPROPANOL (ISOPROPANOL) [Concomitant]
  11. ETHYLENE GLYCOL (ETHYLENE GLYCOL) [Concomitant]

REACTIONS (17)
  - ACUTE RESPIRATORY DISTRESS SYNDROME [None]
  - BURN OESOPHAGEAL [None]
  - BURNS SECOND DEGREE [None]
  - BURNS THIRD DEGREE [None]
  - CAUSTIC INJURY [None]
  - COMPLETED SUICIDE [None]
  - DISSEMINATED INTRAVASCULAR COAGULATION [None]
  - GASTRITIS [None]
  - HAEMODIALYSIS [None]
  - HEART RATE INCREASED [None]
  - MULTI-ORGAN FAILURE [None]
  - MYDRIASIS [None]
  - NECROSIS [None]
  - OEDEMA MUCOSAL [None]
  - ORAL MUCOSAL DISCOLOURATION [None]
  - RESPIRATORY DISTRESS [None]
  - SHOCK [None]
